FAERS Safety Report 14958988 (Version 3)
Quarter: 2018Q3

REPORT INFORMATION
  Report Type: Spontaneous
  Country: US (occurrence: US)
  Receive Date: 20180531
  Receipt Date: 20180822
  Transmission Date: 20181010
  Serious: No
  Sender: FDA-Public Use
  Company Number: US-ASTRAZENECA-2018SE60161

PATIENT
  Sex: Female
  Weight: 79.4 kg

DRUGS (3)
  1. BYDUREON BCISE [Suspect]
     Active Substance: EXENATIDE
     Indication: TYPE 2 DIABETES MELLITUS
     Route: 058
     Dates: start: 20180508
  2. BYDUREON [Suspect]
     Active Substance: EXENATIDE
     Indication: TYPE 2 DIABETES MELLITUS
     Route: 058
     Dates: start: 2016
  3. METFORMIN [Concomitant]
     Active Substance: METFORMIN HYDROCHLORIDE
     Indication: DIABETES MELLITUS

REACTIONS (9)
  - Injection site pruritus [Recovered/Resolved]
  - Injection site warmth [Unknown]
  - Overweight [Unknown]
  - Injection site mass [Not Recovered/Not Resolved]
  - Device malfunction [Unknown]
  - Injection site pain [Recovered/Resolved]
  - Injection site pain [Unknown]
  - Injection site nodule [Not Recovered/Not Resolved]
  - Weight decreased [Unknown]
